FAERS Safety Report 4325140-7 (Version None)
Quarter: 2004Q1

REPORT INFORMATION
  Report Type: 
  Country: None (occurrence: None)
  Receive Date: 20040323
  Receipt Date: 20040127
  Transmission Date: 20041129
  Serious: No
  Sender: FDA-Public Use
  Company Number: USA040157634

PATIENT
  Age: 61 Year
  Sex: Male
  Weight: 111 kg

DRUGS (3)
  1. CIALIS [Suspect]
     Indication: PROSTATECTOMY
     Dosage: 20 MG/ 1 EVERY OTHER DAY
     Dates: start: 20031219
  2. ASPIRIN [Concomitant]
  3. AMBIEN [Concomitant]

REACTIONS (2)
  - ABNORMAL DREAMS [None]
  - INSOMNIA [None]
